FAERS Safety Report 18835032 (Version 3)
Quarter: 2021Q1

REPORT INFORMATION
  Report Type: Spontaneous
  Country: JP (occurrence: JP)
  Receive Date: 20210203
  Receipt Date: 20210331
  Transmission Date: 20210419
  Serious: Yes (Other)
  Sender: FDA-Public Use
  Company Number: NVSJ2021JP001043

PATIENT
  Age: 70 Year
  Sex: Male

DRUGS (8)
  1. MAYZENT [Suspect]
     Active Substance: SIPONIMOD
     Dosage: 0.5 MG
     Route: 048
     Dates: start: 20210107, end: 20210107
  2. MAYZENT [Suspect]
     Active Substance: SIPONIMOD
     Dosage: 1.25 MG
     Route: 048
     Dates: start: 20210109, end: 20210109
  3. MAYZENT [Suspect]
     Active Substance: SIPONIMOD
     Dosage: 0.75 MG
     Route: 048
     Dates: start: 20210108, end: 20210108
  4. METHYLPREDNISOLONE. [Concomitant]
     Active Substance: METHYLPREDNISOLONE
     Indication: PRODUCT USED FOR UNKNOWN INDICATION
     Dosage: 1000 MG,2 COURSES
     Route: 065
     Dates: start: 20210126
  5. MAYZENT [Suspect]
     Active Substance: SIPONIMOD
     Dosage: 2 MG
     Route: 048
     Dates: start: 20210110, end: 20210126
  6. MAYZENT [Suspect]
     Active Substance: SIPONIMOD
     Dosage: 0.25 MG
     Route: 048
     Dates: start: 20210106, end: 20210106
  7. GAMMA GLOBULIN [Concomitant]
     Active Substance: IMMUNE GLOBULIN NOS
     Indication: PRODUCT USED FOR UNKNOWN INDICATION
     Dosage: 250 MG/KG
     Route: 065
     Dates: start: 20210208
  8. MAYZENT [Suspect]
     Active Substance: SIPONIMOD
     Indication: SECONDARY PROGRESSIVE MULTIPLE SCLEROSIS
     Dosage: 0.25 MG
     Route: 048
     Dates: start: 20210105, end: 20210105

REACTIONS (6)
  - Noninfective encephalitis [Recovered/Resolved]
  - Altered state of consciousness [Recovered/Resolved]
  - Bradycardia [Recovered/Resolved]
  - Lymphocyte count decreased [Recovered/Resolved]
  - Aphasia [Recovered/Resolved]
  - Encephalitis autoimmune [Recovered/Resolved]

NARRATIVE: CASE EVENT DATE: 20210109
